FAERS Safety Report 7532184-0 (Version None)
Quarter: 2011Q2

REPORT INFORMATION
  Report Type: 
  Country: None (occurrence: None)
  Receive Date: 20110601
  Receipt Date: 20110511
  Transmission Date: 20111010
  Serious: Yes (Other)
  Sender: FDA-Public Use
  Company Number: CIO11009381

PATIENT
  Age: 40 Year
  Sex: Male

DRUGS (1)
  1. VAPORUB, REGULAR SCENT(CAMPHOR 143.07 MG, CEDAR LEAF OIL 20.4 MG, EUCA [Suspect]
     Dosage: TOPICAL
     Route: 061

REACTIONS (11)
  - THERMAL BURN [None]
  - CORNEAL OPACITY [None]
  - WRONG TECHNIQUE IN DRUG USAGE PROCESS [None]
  - CORNEAL NEOVASCULARISATION [None]
  - EYE PAIN [None]
  - STEM CELL TRANSPLANT [None]
  - CONJUNCTIVAL OEDEMA [None]
  - IMPAIRED HEALING [None]
  - CORNEAL EPITHELIUM DEFECT [None]
  - PERIORBITAL OEDEMA [None]
  - VISUAL ACUITY REDUCED [None]
